FAERS Safety Report 9375225 (Version 1)
Quarter: 2013Q2

REPORT INFORMATION
  Report Type: Spontaneous
  Country: US (occurrence: US)
  Receive Date: 20130628
  Receipt Date: 20130628
  Transmission Date: 20140414
  Serious: Yes (Congenital Anomaly, Other)
  Sender: FDA-Public Use
  Company Number: US-PFIZER INC-2013174278

PATIENT
  Sex: 0

DRUGS (1)
  1. DEPO-PROVERA [Suspect]
     Indication: CONTRACEPTION
     Dosage: 150 MG, EVERY 3 MONTHS
     Route: 064
     Dates: start: 20130315, end: 20130606

REACTIONS (2)
  - Maternal exposure during pregnancy [Unknown]
  - Anencephaly [Unknown]
